FAERS Safety Report 9919590 (Version 2)
Quarter: 2014Q1

REPORT INFORMATION
  Report Type: Spontaneous
  Country: US (occurrence: US)
  Receive Date: 20140224
  Receipt Date: 20140305
  Transmission Date: 20141002
  Serious: Yes (Hospitalization, Other)
  Sender: FDA-Public Use
  Company Number: US-PFIZER INC-2014047822

PATIENT
  Age: 83 Year
  Sex: Female
  Weight: 61.22 kg

DRUGS (10)
  1. ADVIL [Suspect]
     Dosage: UNK
  2. XARELTO [Suspect]
     Indication: ATRIAL FIBRILLATION
     Dosage: 20 MG, 1X/DAY (1 IN 1 DAY)
     Route: 048
     Dates: start: 201311
  3. XARELTO [Suspect]
     Indication: CEREBROVASCULAR ACCIDENT PROPHYLAXIS
     Dosage: 20 MG, 1X/DAY (1 IN 1 DAY)
     Route: 048
     Dates: start: 20131220, end: 20131223
  4. XARELTO [Suspect]
     Dosage: 15 MG, 1X/DAY (1 IN 1 DAY)
     Route: 048
     Dates: start: 20140113
  5. MULTAQ [Concomitant]
     Dosage: UNK
  6. ADVIL PM [Concomitant]
     Dosage: 200 MG, (IN 1 AS NECESSARY)
  7. ASA [Concomitant]
     Dosage: 81 MG, UNK
     Route: 048
     Dates: start: 20140103
  8. CARDIZEM [Concomitant]
     Dosage: 10 MG, 1X/DAY (1 IN 1 DAY)
     Route: 048
  9. FLECAINIDE [Concomitant]
     Dosage: 50 MG, 2X/DAY (2 IN 1 DAY)
     Route: 048
     Dates: start: 20140118
  10. PRILOSEC [Concomitant]
     Dosage: UNK

REACTIONS (8)
  - Incorrect dose administered [Unknown]
  - Haemarthrosis [Recovered/Resolved with Sequelae]
  - Haematoma [Recovered/Resolved with Sequelae]
  - Injury [Recovered/Resolved with Sequelae]
  - Haemoglobin decreased [Unknown]
  - Fracture [Unknown]
  - Arthropathy [Unknown]
  - Arthralgia [Unknown]
